FAERS Safety Report 20319511 (Version 2)
Quarter: 2022Q1

REPORT INFORMATION
  Report Type: Report from Study
  Country: AR (occurrence: AR)
  Receive Date: 20220110
  Receipt Date: 20220203
  Transmission Date: 20220424
  Serious: Yes (Other)
  Sender: FDA-Public Use
  Company Number: AR-JNJFOC-20220108709

PATIENT
  Age: 43 Year
  Sex: Male
  Weight: 63 kg

DRUGS (1)
  1. REMICADE [Suspect]
     Active Substance: INFLIXIMAB
     Indication: Crohn^s disease
     Route: 042
     Dates: start: 20181001, end: 20211223

REACTIONS (2)
  - Large intestinal stenosis [Not Recovered/Not Resolved]
  - Drug ineffective [Unknown]
